FAERS Safety Report 17743671 (Version 1)
Quarter: 2020Q2

REPORT INFORMATION
  Report Type: Report from Study
  Country: JP (occurrence: JP)
  Receive Date: 20200505
  Receipt Date: 20200505
  Transmission Date: 20200714
  Serious: Yes (Hospitalization)
  Sender: FDA-Public Use
  Company Number: JP-ROCHE-2593531

PATIENT
  Age: 80 Year
  Sex: Female

DRUGS (11)
  1. ATEZOLIZUMAB. [Suspect]
     Active Substance: ATEZOLIZUMAB
     Indication: NON-SMALL CELL LUNG CANCER
     Dosage: AMOUNT OF 1 ONCE ADMINISTRATION: 1200 (UNIT UNCERTAINTY) AND 1 COURSE AND DOSE ?INTERVAL UNCERTAINTY
     Route: 041
     Dates: start: 20200414
  2. LOSARTAN POTASSIUM. [Concomitant]
     Active Substance: LOSARTAN POTASSIUM
     Dosage: DOSE INTERVAL UNCERTAINTY
     Route: 065
  3. PRIMPERAN [Concomitant]
     Active Substance: METOCLOPRAMIDE HYDROCHLORIDE
     Dosage: DOSE INTERVAL UNCERTAINTY
     Route: 065
     Dates: start: 20190813
  4. DILTIAZEM HYDROCHLORIDE. [Concomitant]
     Active Substance: DILTIAZEM HYDROCHLORIDE
     Dosage: DOSE INTERVAL UNCERTAINTY
     Route: 065
  5. TEPRENONE [Concomitant]
     Active Substance: TEPRENONE
     Dosage: DOSE INTERVAL UNCERTAINTY
     Route: 065
  6. POLAPREZINC [Concomitant]
     Active Substance: POLAPREZINC
     Dosage: DOSE INTERVAL UNCERTAINTY
     Route: 065
     Dates: start: 20190912
  7. PACLITAXEL. [Suspect]
     Active Substance: PACLITAXEL
     Indication: NON-SMALL CELL LUNG CANCER
     Dosage: AMOUNT OF 1 ONCE ADMINISTRATION: 240 (UNIT UNCERTAINTY) AND 1 COURSE AND DOSE ?INTERVAL UNCERTAINTY
     Route: 041
     Dates: start: 20200414
  8. FAMOTIDINE. [Concomitant]
     Active Substance: FAMOTIDINE
     Dosage: DOSE INTERVAL UNCERTAINTY
     Route: 065
  9. CALONAL [Concomitant]
     Active Substance: ACETAMINOPHEN
     Indication: NON-SMALL CELL LUNG CANCER
     Dosage: DOSE INTERVAL UNCERTAINTY
     Route: 065
     Dates: start: 20200417
  10. BEVACIZUMAB. [Suspect]
     Active Substance: BEVACIZUMAB
     Indication: NON-SMALL CELL LUNG CANCER
     Dosage: AMOUNT OF 1 ONCE ADMINISTRATION: 510 (UNIT UNCERTAINTY) AND 1 COURSE AND DOSE ?INTERVAL UNCERTAINTY
     Route: 041
     Dates: start: 20200414
  11. CARBOPLATIN. [Suspect]
     Active Substance: CARBOPLATIN
     Indication: NON-SMALL CELL LUNG CANCER
     Dosage: AMOUNT OF 1 ONCE ADMINISTRATION: 350 (UNIT UNCERTAINTY) AND 1 COURSE AND DOSE ?INTERVAL UNCERTAINTY
     Route: 041
     Dates: start: 20200414

REACTIONS (1)
  - Pleurisy [Not Recovered/Not Resolved]

NARRATIVE: CASE EVENT DATE: 20200423
